FAERS Safety Report 9866976 (Version 1)
Quarter: 2014Q1

REPORT INFORMATION
  Report Type: Spontaneous
  Country: US (occurrence: US)
  Receive Date: 20140204
  Receipt Date: 20140204
  Transmission Date: 20141002
  Serious: No
  Sender: FDA-Public Use
  Company Number: US-009507513-1401USA014376

PATIENT
  Age: 65 Year
  Sex: Male
  Weight: 83.45 kg

DRUGS (8)
  1. TEMODAR [Suspect]
     Indication: BRAIN NEOPLASM
     Dosage: 14 CYCLES
  2. TEMODAR [Suspect]
     Dosage: 360 MG, HS, CYCLE OF 5 NIGHTS ON THEN23 NIGHTS OFF
     Route: 048
     Dates: start: 20140129
  3. SEREVENT [Concomitant]
     Indication: ASTHMA
     Dosage: UNK
  4. NEXIUM [Concomitant]
     Dosage: UNK
  5. ESCITALOPRAM [Concomitant]
     Dosage: UNK
  6. NAMENDA [Concomitant]
     Dosage: UNK
  7. PHENYTOIN [Concomitant]
     Dosage: UNK
  8. LORAZEPAM [Concomitant]
     Dosage: UNK

REACTIONS (3)
  - Insomnia [Unknown]
  - Vomiting [Recovered/Resolved]
  - Nausea [Not Recovered/Not Resolved]
